FAERS Safety Report 20365350 (Version 2)
Quarter: 2022Q2

REPORT INFORMATION
  Report Type: Report from Study
  Country: EG (occurrence: EG)
  Receive Date: 20220122
  Receipt Date: 20220401
  Transmission Date: 20220721
  Serious: Yes (Other)
  Sender: FDA-Public Use
  Company Number: EG-NOVARTISPH-NVSC2021EG299250

PATIENT
  Age: 58 Year
  Sex: Female

DRUGS (3)
  1. ENTRESTO [Suspect]
     Active Substance: SACUBITRIL\VALSARTAN
     Indication: Cardiac failure
     Dosage: 0.5 DOSAGE FORM, BID (100 MG)
     Route: 048
     Dates: start: 20211103, end: 20211203
  2. ENTRESTO [Suspect]
     Active Substance: SACUBITRIL\VALSARTAN
     Dosage: 1.5 DOSAGE FORM, BID (100 MG HALF TABLET IN THE MORNING AND ONE TABLET AT NIGHT DAILY)
     Route: 048
     Dates: start: 20211203, end: 202201
  3. ENTRESTO [Suspect]
     Active Substance: SACUBITRIL\VALSARTAN
     Dosage: 1 DOSAGE FORM, BID (100 MG)
     Route: 065
     Dates: start: 202201

REACTIONS (3)
  - Immunodeficiency [Unknown]
  - Ejection fraction decreased [Unknown]
  - Wrong technique in product usage process [Recovered/Resolved]

NARRATIVE: CASE EVENT DATE: 20211103
